FAERS Safety Report 25562952 (Version 1)
Quarter: 2025Q3

REPORT INFORMATION
  Report Type: Spontaneous
  Country: US (occurrence: US)
  Receive Date: 20250716
  Receipt Date: 20250716
  Transmission Date: 20251021
  Serious: No
  Sender: NOVO NORDISK
  Company Number: US-NOVOPROD-1356397

PATIENT

DRUGS (1)
  1. OZEMPIC [Suspect]
     Active Substance: SEMAGLUTIDE
     Indication: Type 2 diabetes mellitus
     Dosage: 0.25 ONCE WEEKLY
     Route: 058

REACTIONS (4)
  - Blood pressure increased [Unknown]
  - Product use in unapproved indication [Unknown]
  - Product communication issue [Unknown]
  - Inappropriate schedule of product administration [Unknown]
